FAERS Safety Report 15757290 (Version 2)
Quarter: 2018Q4

REPORT INFORMATION
  Report Type: Spontaneous
  Country: US (occurrence: US)
  Receive Date: 20181224
  Receipt Date: 20181231
  Transmission Date: 20190205
  Serious: No
  Sender: FDA-Public Use
  Company Number: PHEH2018US053427

PATIENT
  Sex: Male

DRUGS (2)
  1. AFINITOR [Suspect]
     Active Substance: EVEROLIMUS
     Indication: RENAL CANCER
     Dosage: UNK
     Route: 065
  2. LENVATINIB [Suspect]
     Active Substance: LENVATINIB
     Indication: RENAL CANCER
     Dosage: 18 MG, QD
     Route: 048

REACTIONS (5)
  - Fatigue [Recovering/Resolving]
  - Lung disorder [Unknown]
  - Somnolence [Unknown]
  - Nocturia [Unknown]
  - Dyspnoea [Unknown]
